FAERS Safety Report 7679446 (Version 15)
Quarter: 2013Q1

REPORT INFORMATION
  Report Type: Spontaneous
  Country: US (occurrence: US)
  Receive Date: 20101123
  Receipt Date: 20130118
  Transmission Date: 20140127
  Serious: Yes (Hospitalization, Other)
  Sender: FDA-Public Use
  Company Number: US-BIOGENIDEC-2010BI040640

PATIENT
  Age: 30 Year
  Sex: Male
  Weight: 95 kg

DRUGS (5)
  1. TYSABRI [Suspect]
     Indication: MULTIPLE SCLEROSIS
     Route: 042
     Dates: start: 20080523, end: 20100917
  2. LEXAPRO [Concomitant]
     Route: 048
  3. MULTIVITAMINS [Concomitant]
     Route: 048
  4. VITAMIN D [Concomitant]
     Route: 048
  5. FISH OIL [Concomitant]
     Route: 048

REACTIONS (3)
  - Progressive multifocal leukoencephalopathy [Recovered/Resolved]
  - Immune reconstitution inflammatory syndrome [Recovered/Resolved]
  - Deep vein thrombosis [Unknown]
